FAERS Safety Report 8311514-6 (Version None)
Quarter: 2012Q2

REPORT INFORMATION
  Report Type: 
  Country: None (occurrence: None)
  Receive Date: 20120425
  Receipt Date: 20120417
  Transmission Date: 20120825
  Serious: Yes (Hospitalization)
  Sender: FDA-Public Use
  Company Number: US-BAYER-2011-123803

PATIENT
  Age: 21 Year
  Sex: Female
  Weight: 79 kg

DRUGS (9)
  1. BEYAZ [Suspect]
     Indication: CONTRACEPTION
     Dosage: UNK
     Route: 048
     Dates: start: 20100101, end: 20110214
  2. METHYLENEDIOXYMETHAMPHETAMINE [Concomitant]
  3. PERCOCET [Concomitant]
  4. ARIXTRA [Concomitant]
  5. ASCORBIC ACID [Concomitant]
     Dosage: UNK
     Dates: start: 20010101, end: 20120101
  6. AUGMENTIN '125' [Concomitant]
     Dosage: UNK
     Route: 048
     Dates: end: 20110201
  7. IBUPROFEN [Concomitant]
     Dosage: UNK
     Dates: start: 20010101, end: 20120101
  8. ACETAMINOPHEN [Concomitant]
  9. YAZ [Suspect]
     Indication: CONTRACEPTION
     Dosage: UNK
     Route: 048
     Dates: start: 20080101, end: 20100101

REACTIONS (6)
  - PULMONARY EMBOLISM [None]
  - FEAR [None]
  - PSYCHOLOGICAL TRAUMA [None]
  - ANXIETY [None]
  - EMOTIONAL DISTRESS [None]
  - PAIN [None]
